FAERS Safety Report 7105351-8 (Version None)
Quarter: 2010Q4

REPORT INFORMATION
  Report Type: 
  Country: None (occurrence: None)
  Receive Date: 20101110
  Receipt Date: 20101025
  Transmission Date: 20110411
  Serious: Yes (Hospitalization)
  Sender: FDA-Public Use
  Company Number: JPI-P-009386

PATIENT
  Age: 81 Year
  Sex: Male
  Weight: 92.9874 kg

DRUGS (3)
  1. XYREM [Suspect]
     Indication: CATAPLEXY
     Dosage: 4.5 GM (2.25 GM, 2 IN 1 D), ORAL
     Route: 048
     Dates: start: 20071204
  2. DEXTROAMPHETAMINE [Concomitant]
  3. .. [Concomitant]

REACTIONS (5)
  - BLOOD TEST ABNORMAL [None]
  - LUNG NEOPLASM [None]
  - MEMORY IMPAIRMENT [None]
  - PULMONARY OEDEMA [None]
  - REFUSAL OF TREATMENT BY PATIENT [None]
